FAERS Safety Report 13560097 (Version 4)
Quarter: 2018Q1

REPORT INFORMATION
  Report Type: Spontaneous
  Country: US (occurrence: US)
  Receive Date: 20170518
  Receipt Date: 20180212
  Transmission Date: 20180508
  Serious: No
  Sender: FDA-Public Use
  Company Number: US-PFIZER INC-2017210155

PATIENT
  Age: 65 Year
  Sex: Male
  Weight: 82 kg

DRUGS (9)
  1. ATIVAN [Concomitant]
     Active Substance: LORAZEPAM
     Indication: TINNITUS
     Dosage: 1 MG, AS NEEDED
     Route: 048
     Dates: start: 2015
  2. BENICAR [Concomitant]
     Active Substance: OLMESARTAN MEDOXOMIL
     Indication: BLOOD PRESSURE ABNORMAL
     Dosage: 20 MG, ONCE A DAY
     Dates: start: 2005
  3. LIPITOR [Concomitant]
     Active Substance: ATORVASTATIN CALCIUM
     Indication: BLOOD CHOLESTEROL ABNORMAL
     Dosage: 20 MG, ONCE A DAY
     Route: 048
     Dates: start: 2005
  4. OMEGA 3 [Concomitant]
     Active Substance: OMEGA-3 FATTY ACIDS
     Indication: BLOOD TRIGLYCERIDES ABNORMAL
     Dosage: 1 G, TWICE A DAY
     Route: 048
     Dates: start: 2001
  5. METOPROLOL. [Concomitant]
     Active Substance: METOPROLOL
     Indication: BLOOD PRESSURE ABNORMAL
     Dosage: 12.5 MG, TWICE DAILY (IN THE MORNING AND AT NIGHT)
     Route: 048
     Dates: start: 2005
  6. VIAGRA [Suspect]
     Active Substance: SILDENAFIL CITRATE
     Indication: ERECTILE DYSFUNCTION
     Dosage: UNK
     Dates: start: 201002, end: 201612
  7. COENZYME Q10 [Concomitant]
     Active Substance: UBIDECARENONE
     Indication: PROPHYLAXIS
     Dosage: 200 MG, ONCE A DAY
     Route: 048
     Dates: start: 2001
  8. ATIVAN [Concomitant]
     Active Substance: LORAZEPAM
     Indication: ANXIETY
     Dosage: 1 MG, 2 TO 3 TIMES A DAY
     Route: 048
     Dates: start: 2005
  9. VITAMIN D [Concomitant]
     Active Substance: CHOLECALCIFEROL
     Dosage: 1 PILL (DF), ONCE A DAY
     Route: 048
     Dates: start: 2017

REACTIONS (7)
  - Nasal disorder [Not Recovered/Not Resolved]
  - Sinus disorder [Not Recovered/Not Resolved]
  - Condition aggravated [Not Recovered/Not Resolved]
  - Nasal dryness [Unknown]
  - Nasal discomfort [Not Recovered/Not Resolved]
  - Sinus congestion [Not Recovered/Not Resolved]
  - Rhinorrhoea [Not Recovered/Not Resolved]

NARRATIVE: CASE EVENT DATE: 201612
